FAERS Safety Report 4958210-0 (Version None)
Quarter: 2006Q1

REPORT INFORMATION
  Report Type: 
  Country: None (occurrence: None)
  Receive Date: 20060330
  Receipt Date: 20060320
  Transmission Date: 20060701
  Serious: Yes (Death, Life-Threatening)
  Sender: FDA-Public Use
  Company Number: DE-ROCHE-440831

PATIENT
  Age: 59 Year
  Sex: Female

DRUGS (5)
  1. DACLIZUMAB [Suspect]
     Route: 048
  2. TACROLIMUS [Suspect]
     Route: 048
     Dates: start: 20051015
  3. TACROLIMUS [Suspect]
     Route: 048
  4. HYDROCORTISON [Concomitant]
  5. ERYTHROMYCIN [Concomitant]

REACTIONS (2)
  - SEPSIS [None]
  - SEPTIC SHOCK [None]
